FAERS Safety Report 22118022 (Version 1)
Quarter: 2023Q1

REPORT INFORMATION
  Report Type: Spontaneous
  Country: US (occurrence: None)
  Receive Date: 20230321
  Receipt Date: 20230321
  Transmission Date: 20230418
  Serious: No
  Sender: FDA-Public Use
  Company Number: US-ROCHE-3256120

PATIENT
  Age: 68 Year
  Sex: Male

DRUGS (2)
  1. VABYSMO [Suspect]
     Active Substance: FARICIMAB-SVOA
     Indication: Diabetic retinopathy
     Dosage: 6MG/0.05 ML?INJECT 6 MG VIA INTRAVITREAL ADMINISTRATION INTO EACH EYE EVERY 2 MONTH(S) FOR 1 YEAR
     Route: 050
  2. VABYSMO [Suspect]
     Active Substance: FARICIMAB-SVOA
     Indication: Diabetic retinal oedema

REACTIONS (2)
  - Off label use [Unknown]
  - No adverse event [Unknown]
